FAERS Safety Report 16126103 (Version 1)
Quarter: 2019Q1

REPORT INFORMATION
  Report Type: Spontaneous
  Country: US (occurrence: US)
  Receive Date: 20190328
  Receipt Date: 20190328
  Transmission Date: 20190418
  Serious: Yes (Hospitalization)
  Sender: FDA-Public Use
  Company Number: US-PFIZER INC-2019120007

PATIENT
  Age: 58 Year
  Sex: Male
  Weight: 127.9 kg

DRUGS (4)
  1. LYRICA [Interacting]
     Active Substance: PREGABALIN
     Dosage: 75 MG, 2X/DAY
     Route: 048
  2. LYRICA [Interacting]
     Active Substance: PREGABALIN
     Dosage: 150 MG, 1X/DAY (AT NIGHT ONLY)
     Route: 048
  3. LYRICA [Suspect]
     Active Substance: PREGABALIN
     Indication: DIABETIC NEUROPATHY
     Dosage: 75 MG, 2X/DAY
     Route: 048
  4. LYRICA [Interacting]
     Active Substance: PREGABALIN
     Dosage: 75 MG, 3X/DAY (75MG LYRICA IN THE MORNING AND AT NIGHT, AND BY BEDTIME)
     Route: 048

REACTIONS (2)
  - Drug interaction [Recovered/Resolved]
  - Drug effect incomplete [Unknown]
